FAERS Safety Report 8240072-X (Version None)
Quarter: 2012Q1

REPORT INFORMATION
  Report Type: 
  Country: None (occurrence: None)
  Receive Date: 20120309
  Receipt Date: 20100721
  Transmission Date: 20120608
  Serious: Yes (Other)
  Sender: FDA-Public Use
  Company Number: PHHY2010US38740

PATIENT
  Age: 63 Year
  Sex: Female

DRUGS (15)
  1. GABAPENTIN [Concomitant]
  2. OXYCODONE HCL [Concomitant]
  3. METOPROLOL TARTRATE [Concomitant]
  4. DETROL [Concomitant]
  5. BACLOFEN [Concomitant]
  6. ALBUTEROL [Concomitant]
  7. TEMAZEPAM [Concomitant]
  8. METOCLOPRAMIDE [Concomitant]
  9. AMITRIPTYLINE HCL [Concomitant]
  10. EXTAVIA [Suspect]
     Indication: MULTIPLE SCLEROSIS
     Dosage: 0.25 MG, QOD, SUBCUTANEOUS
     Route: 058
     Dates: start: 20100522
  11. MELOXICAM [Concomitant]
  12. DOXAZOSIN MESYLATE [Concomitant]
  13. CYMBALTA [Concomitant]
  14. AMPYRA [Concomitant]
  15. VITAMIN D [Concomitant]

REACTIONS (11)
  - DYSPNOEA [None]
  - INFLUENZA LIKE ILLNESS [None]
  - INJECTION SITE OEDEMA [None]
  - ABDOMINAL DISCOMFORT [None]
  - MUSCLE SPASMS [None]
  - INJECTION SITE HAEMATOMA [None]
  - MUSCULAR WEAKNESS [None]
  - INJECTION SITE ERYTHEMA [None]
  - EATING DISORDER [None]
  - ASTHENIA [None]
  - HEADACHE [None]
